FAERS Safety Report 24952930 (Version 2)
Quarter: 2025Q1

REPORT INFORMATION
  Report Type: Spontaneous
  Country: US (occurrence: None)
  Receive Date: 20250211
  Receipt Date: 20250217
  Transmission Date: 20250409
  Serious: No
  Sender: ENCUBE ETHICALS
  Company Number: US-Encube-001640

PATIENT
  Sex: Female

DRUGS (1)
  1. METRONIDAZOLE [Suspect]
     Active Substance: METRONIDAZOLE
     Indication: Product used for unknown indication
     Route: 067
     Dates: start: 202501

REACTIONS (2)
  - Product delivery mechanism issue [Unknown]
  - Application site pain [Unknown]

NARRATIVE: CASE EVENT DATE: 20250101
